FAERS Safety Report 5015434-4 (Version None)
Quarter: 2006Q2

REPORT INFORMATION
  Report Type: 
  Country: None (occurrence: None)
  Receive Date: 20060601
  Receipt Date: 20060522
  Transmission Date: 20061013
  Serious: Yes (Other)
  Sender: FDA-Public Use
  Company Number: PHEH2006US06734

PATIENT
  Age: 82 Year
  Sex: Male

DRUGS (1)
  1. ENABLEX [Suspect]
     Indication: BLADDER DISORDER
     Dosage: 7.5 MG, QD
     Dates: start: 20060516

REACTIONS (4)
  - ABNORMAL BEHAVIOUR [None]
  - DISORIENTATION [None]
  - HALLUCINATION, VISUAL [None]
  - URINARY RETENTION [None]
